FAERS Safety Report 8034430-6 (Version None)
Quarter: 2012Q1

REPORT INFORMATION
  Report Type: 
  Country: None (occurrence: None)
  Receive Date: 20120110
  Receipt Date: 20111229
  Transmission Date: 20120608
  Serious: Yes (Hospitalization)
  Sender: FDA-Public Use
  Company Number: US-CELGENEUS-163-21880-11111890

PATIENT
  Sex: Male

DRUGS (6)
  1. REVLIMID [Suspect]
     Indication: MULTIPLE MYELOMA
     Dosage: 25 MILLIGRAM
     Route: 048
     Dates: start: 20111013, end: 20111102
  2. PEGASYS [Concomitant]
     Indication: HEPATITIS C
     Route: 065
  3. GLYBURIDE [Concomitant]
     Route: 065
  4. DEXAMETHASONE [Concomitant]
     Indication: MULTIPLE MYELOMA
     Dosage: 40 MILLIGRAM
     Route: 048
     Dates: start: 20111013
  5. ATENOLOL [Concomitant]
     Indication: HYPERTENSION
     Route: 065
  6. PERCOCET [Concomitant]
     Route: 065

REACTIONS (1)
  - ADVERSE EVENT [None]
